FAERS Safety Report 11717809 (Version 2)
Quarter: 2016Q1

REPORT INFORMATION
  Report Type: Report from Study
  Country: CA (occurrence: CA)
  Receive Date: 20151110
  Receipt Date: 20160120
  Transmission Date: 20160525
  Serious: Yes (Hospitalization)
  Sender: FDA-Public Use
  Company Number: CA-ROCHE-1655017

PATIENT
  Age: 77 Year
  Sex: Male
  Weight: 89.7 kg

DRUGS (20)
  1. FLOMAX [Concomitant]
     Active Substance: TAMSULOSIN HYDROCHLORIDE
     Route: 065
  2. CHLORAMBUCIL [Suspect]
     Active Substance: CHLORAMBUCIL
     Indication: CHRONIC LYMPHOCYTIC LEUKAEMIA
     Route: 065
     Dates: start: 20150714
  3. SYMBICORT [Concomitant]
     Active Substance: BUDESONIDE\FORMOTEROL FUMARATE DIHYDRATE
     Indication: CHRONIC OBSTRUCTIVE PULMONARY DISEASE
     Route: 065
  4. VALTREX [Concomitant]
     Active Substance: VALACYCLOVIR HYDROCHLORIDE
     Route: 048
  5. ZOPICLONE [Concomitant]
     Active Substance: ZOPICLONE
     Route: 065
  6. OBINUTUZUMAB [Suspect]
     Active Substance: OBINUTUZUMAB
     Indication: CHRONIC LYMPHOCYTIC LEUKAEMIA
     Dosage: DOSE PRIORT TO ADVERSE EVENT: 14/OCT/2015
     Route: 065
     Dates: start: 20150714
  7. SPIRIVA [Concomitant]
     Active Substance: TIOTROPIUM BROMIDE MONOHYDRATE
     Indication: CHRONIC OBSTRUCTIVE PULMONARY DISEASE
     Route: 065
     Dates: start: 2012
  8. ALENDRONATE [Concomitant]
     Active Substance: ALENDRONATE SODIUM
     Route: 065
     Dates: start: 2014
  9. BUTRANS [Concomitant]
     Active Substance: BUPRENORPHINE
     Indication: BACK PAIN
     Route: 065
  10. NIACIN. [Concomitant]
     Active Substance: NIACIN
     Indication: PROPHYLAXIS
  11. ASPIRIN. [Concomitant]
     Active Substance: ASPIRIN
     Indication: PROPHYLAXIS
     Route: 065
     Dates: start: 201505
  12. TYLENOL [Concomitant]
     Active Substance: ACETAMINOPHEN
     Indication: PROPHYLAXIS
  13. CHLORAMBUCIL [Suspect]
     Active Substance: CHLORAMBUCIL
     Route: 065
     Dates: start: 20151110
  14. NYSTATIN. [Concomitant]
     Active Substance: NYSTATIN
  15. VENTOLIN [Concomitant]
     Active Substance: ALBUTEROL SULFATE
     Indication: CHRONIC OBSTRUCTIVE PULMONARY DISEASE
  16. TAMSULOSIN [Concomitant]
     Active Substance: TAMSULOSIN
     Route: 065
     Dates: start: 201012
  17. LECITHIN [Concomitant]
     Active Substance: LECITHIN
     Indication: PROPHYLAXIS
     Route: 065
     Dates: start: 2012
  18. CHLORAMBUCIL [Suspect]
     Active Substance: CHLORAMBUCIL
     Dosage: DOSE PRIOR TO ADVERSE EVENT ON 14/OCT/2015
     Route: 065
     Dates: start: 20150818
  19. SALVENT (ALBUTEROL) [Concomitant]
     Route: 065
  20. ALLOPURINOL. [Concomitant]
     Active Substance: ALLOPURINOL
     Route: 065

REACTIONS (1)
  - Febrile neutropenia [Recovered/Resolved]

NARRATIVE: CASE EVENT DATE: 20151030
